FAERS Safety Report 7249327-9 (Version None)
Quarter: 2011Q1

REPORT INFORMATION
  Report Type: 
  Country: None (occurrence: None)
  Receive Date: 20110128
  Receipt Date: 20110118
  Transmission Date: 20110831
  Serious: Yes (Hospitalization)
  Sender: FDA-Public Use
  Company Number: JP-NOVOPROD-321847

PATIENT
  Age: 51 Year
  Sex: Female
  Weight: 67 kg

DRUGS (5)
  1. AMARYL [Concomitant]
     Dosage: 6 MG, QD
     Route: 048
     Dates: end: 20110113
  2. VICTOZA [Suspect]
     Indication: TYPE 2 DIABETES MELLITUS
     Dosage: 0.3 MG, QD
     Route: 058
     Dates: start: 20101129, end: 20101201
  3. VICTOZA [Suspect]
     Dosage: 0.9 MG, QD
     Route: 058
     Dates: start: 20101227, end: 20110113
  4. VICTOZA [Suspect]
     Dosage: UNK
     Route: 065
     Dates: start: 20110101
  5. VICTOZA [Suspect]
     Dosage: 0.6 MG, QD
     Route: 058
     Dates: start: 20101224

REACTIONS (1)
  - CHOLELITHIASIS [None]
